FAERS Safety Report 4809413-7 (Version None)
Quarter: 2005Q4

REPORT INFORMATION
  Report Type: 
  Country: None (occurrence: None)
  Receive Date: 20051021
  Receipt Date: 20051011
  Transmission Date: 20060501
  Serious: Yes (Death)
  Sender: FDA-Public Use
  Company Number: 051017-0001009

PATIENT
  Age: 47 Year

DRUGS (3)
  1. METHAMPHETAMINE HCL [Suspect]
     Dosage: PO
     Route: 048
     Dates: end: 20040101
  2. CLONAZEPAM [Suspect]
     Dosage: PO
     Route: 048
     Dates: end: 20040101
  3. FLUMAZENIL [Suspect]
     Dosage: PO
     Route: 048
     Dates: end: 20040101

REACTIONS (2)
  - COMPLETED SUICIDE [None]
  - INTENTIONAL DRUG MISUSE [None]
